FAERS Safety Report 23262562 (Version 2)
Quarter: 2024Q1

REPORT INFORMATION
  Report Type: Spontaneous
  Country: US (occurrence: US)
  Receive Date: 20231205
  Receipt Date: 20240105
  Transmission Date: 20240410
  Serious: No
  Sender: FDA-Public Use
  Company Number: US-PFIZER INC-PV202300181418

PATIENT
  Age: 61 Year
  Sex: Male

DRUGS (1)
  1. INLYTA [Suspect]
     Active Substance: AXITINIB
     Dosage: 5 MG, 2X/DAY (1 TABLET TWICE DAILY FOR 21 DAYS)
     Route: 048
     Dates: start: 20231031

REACTIONS (5)
  - Burning sensation [Unknown]
  - Hyperaesthesia [Unknown]
  - Skin discolouration [Unknown]
  - Dehydration [Unknown]
  - Product dose omission issue [Unknown]

NARRATIVE: CASE EVENT DATE: 20230101
